FAERS Safety Report 20032317 (Version 1)
Quarter: 2021Q4

REPORT INFORMATION
  Report Type: Spontaneous
  Country: US (occurrence: US)
  Receive Date: 20211103
  Receipt Date: 20211103
  Transmission Date: 20220303
  Serious: Yes (Other)
  Sender: FDA-Public Use
  Company Number: US-ALLERGAN-2120810US

PATIENT

DRUGS (2)
  1. VRAYLAR [Suspect]
     Active Substance: CARIPRAZINE
     Indication: Exposure during pregnancy
     Dosage: UNK
     Route: 063
  2. VRAYLAR [Suspect]
     Active Substance: CARIPRAZINE
     Indication: Exposure via breast milk
     Dosage: UNK
     Route: 064

REACTIONS (3)
  - Tardive dyskinesia [Recovered/Resolved]
  - Maternal exposure during breast feeding [Unknown]
  - Pregnancy [Unknown]
